FAERS Safety Report 24654760 (Version 1)
Quarter: 2024Q4

REPORT INFORMATION
  Report Type: Spontaneous
  Country: TW (occurrence: TW)
  Receive Date: 20241122
  Receipt Date: 20241122
  Transmission Date: 20250115
  Serious: Yes (Death, Hospitalization, Other)
  Sender: VISTAPHARM
  Company Number: TW-VISTAPHARM-2024-TW-000032

PATIENT
  Age: 51 Year
  Sex: Male

DRUGS (3)
  1. TACROLIMUS [Concomitant]
     Active Substance: TACROLIMUS
     Dosage: 0.5 MG TWICE DAILY
  2. PREDNISOLONE [Concomitant]
     Active Substance: PREDNISOLONE
     Dosage: 5 MG 3 TIMES DAILY
  3. MYCOPHENOLATE MOFETIL [Suspect]
     Active Substance: MYCOPHENOLATE MOFETIL
     Indication: Immunosuppressant drug therapy
     Dosage: 180 MG TWICE DAILY
     Dates: start: 2023

REACTIONS (3)
  - Coeliac disease [Fatal]
  - Mesenteric artery thrombosis [Fatal]
  - CEC syndrome [Fatal]
